FAERS Safety Report 6087170-7 (Version None)
Quarter: 2009Q1

REPORT INFORMATION
  Report Type: 
  Country: None (occurrence: None)
  Receive Date: 20090223
  Receipt Date: 20090217
  Transmission Date: 20090719
  Serious: Yes (Hospitalization)
  Sender: FDA-Public Use
  Company Number: FR-MERCK-0902FRA00050

PATIENT
  Age: 72 Year
  Sex: Male

DRUGS (7)
  1. ZETIA [Suspect]
     Indication: HYPERCHOLESTEROLAEMIA
     Route: 048
     Dates: start: 20080701
  2. ASPIRIN LYSINE [Concomitant]
     Route: 048
  3. HYDROCHLOROTHIAZIDE AND VALSARTAN [Concomitant]
     Route: 048
  4. AMLODIPINE [Concomitant]
     Route: 048
  5. NICORANDIL [Concomitant]
     Route: 048
  6. GABAPENTIN [Concomitant]
     Route: 048
  7. DICLOFENAC SODIUM [Concomitant]
     Route: 048

REACTIONS (1)
  - DEMYELINATING POLYNEUROPATHY [None]
